FAERS Safety Report 6820447-3 (Version None)
Quarter: 2010Q3

REPORT INFORMATION
  Report Type: 
  Country: None (occurrence: None)
  Receive Date: 20100707
  Receipt Date: 20100630
  Transmission Date: 20110219
  Serious: Yes (Hospitalization, Other)
  Sender: FDA-Public Use
  Company Number: DE-PFIZER INC-2010019381

PATIENT
  Age: 73 Year
  Sex: Female
  Weight: 64 kg

DRUGS (15)
  1. CELEBREX [Suspect]
     Indication: RHEUMATOID ARTHRITIS
     Dosage: 200 MG, 1X/DAY
     Route: 048
  2. PREDNISOLONE [Interacting]
     Indication: RHEUMATOID ARTHRITIS
     Dosage: 10 MG, PER DAY
     Dates: start: 20100225
  3. PREDNISOLONE [Interacting]
     Dosage: 7.5 MG, PER DAY
     Dates: start: 20100301
  4. PREDNISOLONE [Interacting]
     Dosage: 5 MG, 1X/DAY
     Route: 048
     Dates: start: 20100308
  5. PREDNISOLONE [Interacting]
     Dosage: 20 MG, PER DAY
     Dates: start: 20100422
  6. PREDNISOLONE [Interacting]
     Dosage: 15 MG, PER DAY
     Dates: start: 20100426
  7. PREDNISOLONE [Interacting]
     Dosage: 10 MG, PER DAY
     Dates: start: 20100503
  8. PREDNISOLONE [Interacting]
     Dosage: 5 MG, PER DAY
     Dates: start: 20100508
  9. METEX [Interacting]
     Indication: RHEUMATOID ARTHRITIS
     Dosage: 10 MG, WEEKLY
     Route: 048
  10. METEX [Interacting]
     Dosage: UNK
     Dates: start: 20100422
  11. RAMIPRIL/HYDROCHLOROTHIAZIDE [Concomitant]
     Indication: HYPERTENSION
     Dosage: 1 DF (5 MG RAMIPRIL, 25 MG HYDROCHLOROTHIAZIDE), AS NEEDED
     Route: 048
  12. RAMIPRIL [Concomitant]
     Dosage: 2.5 MG, AS NEEDED
     Route: 048
  13. OBSIDAN [Concomitant]
     Indication: HYPERTENSION
     Dosage: 25 MG, 2X/DAY
     Route: 048
  14. ACTONEL PLUS CALCIUM D [Concomitant]
     Indication: OSTEOPOROSIS
     Dosage: 1 DF, WEEKLY
     Route: 048
  15. PANTOZOL [Concomitant]
     Indication: PROPHYLAXIS AGAINST GASTROINTESTINAL ULCER
     Dosage: 40 MG, 1X/DAY
     Route: 048

REACTIONS (8)
  - ABDOMINAL PAIN UPPER [None]
  - ARTHROPATHY [None]
  - DRUG INTERACTION [None]
  - GAIT DISTURBANCE [None]
  - HELICOBACTER INFECTION [None]
  - IMPLANT SITE EFFUSION [None]
  - MUCOSAL INFLAMMATION [None]
  - TRACHEOBRONCHITIS [None]
